FAERS Safety Report 19928718 (Version 5)
Quarter: 2021Q4

REPORT INFORMATION
  Report Type: Report from Study
  Country: US (occurrence: US)
  Receive Date: 20211007
  Receipt Date: 20211210
  Transmission Date: 20220303
  Serious: No
  Sender: FDA-Public Use
  Company Number: NVSC2021US228810

PATIENT
  Sex: Male

DRUGS (1)
  1. ENTRESTO [Suspect]
     Active Substance: SACUBITRIL\VALSARTAN
     Indication: Product used for unknown indication
     Dosage: 1 DF, BID
     Route: 048
     Dates: start: 2020

REACTIONS (10)
  - Weight decreased [Unknown]
  - Decreased appetite [Unknown]
  - Dyspnoea [Unknown]
  - Poor quality sleep [Unknown]
  - Anxiety [Unknown]
  - Back pain [Unknown]
  - Dysstasia [Unknown]
  - Gait disturbance [Unknown]
  - Fatigue [Unknown]
  - Cough [Unknown]
